FAERS Safety Report 7197349-9 (Version None)
Quarter: 2010Q4

REPORT INFORMATION
  Report Type: 
  Country: None (occurrence: None)
  Receive Date: 20101213
  Receipt Date: 20101209
  Transmission Date: 20110411
  Serious: Yes (Death, Other)
  Sender: FDA-Public Use
  Company Number: 2010SP063490

PATIENT
  Age: 59 Year
  Sex: Female

DRUGS (4)
  1. REMERON [Suspect]
     Indication: MAJOR DEPRESSION
     Dosage: 15 MG;QD;PO ; 45 MG;QD;PO ; 30 MG;QD;PO
     Route: 048
     Dates: start: 20091014, end: 20091201
  2. REMERON [Suspect]
     Indication: MAJOR DEPRESSION
     Dosage: 15 MG;QD;PO ; 45 MG;QD;PO ; 30 MG;QD;PO
     Route: 048
     Dates: start: 20100804, end: 20101125
  3. REMERON [Suspect]
     Indication: MAJOR DEPRESSION
     Dosage: 15 MG;QD;PO ; 45 MG;QD;PO ; 30 MG;QD;PO
     Route: 048
     Dates: start: 20091201
  4. DEPAKENE [Concomitant]

REACTIONS (3)
  - ASTHENIA [None]
  - FACE OEDEMA [None]
  - FATIGUE [None]
